FAERS Safety Report 4651498-5 (Version None)
Quarter: 2005Q2

REPORT INFORMATION
  Report Type: 
  Country: None (occurrence: None)
  Receive Date: 20050503
  Receipt Date: 20030505
  Transmission Date: 20051028
  Serious: Yes (Congenital Anomaly)
  Sender: FDA-Public Use
  Company Number: FR-MERCK-0305FRA00028

PATIENT
  Sex: Male
  Weight: 3 kg

DRUGS (1)
  1. ZOCOR [Suspect]
     Indication: HYPERCHOLESTEROLAEMIA

REACTIONS (3)
  - MATERNAL DRUGS AFFECTING FOETUS [None]
  - PREGNANCY [None]
  - URINARY TRACT MALFORMATION [None]
